FAERS Safety Report 8267338-1 (Version None)
Quarter: 2012Q2

REPORT INFORMATION
  Report Type: 
  Country: None (occurrence: None)
  Receive Date: 20120409
  Receipt Date: 20120326
  Transmission Date: 20120825
  Serious: Yes (Other)
  Sender: FDA-Public Use
  Company Number: PHHY2012JP027497

PATIENT
  Age: 27 Year
  Sex: Female

DRUGS (3)
  1. PREDNISOLONE [Concomitant]
     Indication: LUNG TRANSPLANT
     Dosage: UNK UKN, UNK
     Route: 048
  2. MYCOPHENOLATE MOFETIL [Concomitant]
     Indication: LUNG TRANSPLANT
     Dosage: UNK UKN, UNK
     Route: 048
  3. CYCLOSPORINE [Suspect]
     Indication: LUNG TRANSPLANT
     Dosage: UNK UKN, UNK
     Route: 048

REACTIONS (1)
  - OBLITERATIVE BRONCHIOLITIS [None]
